FAERS Safety Report 7234020-9 (Version None)
Quarter: 2011Q1

REPORT INFORMATION
  Report Type: 
  Country: None (occurrence: None)
  Receive Date: 20110113
  Receipt Date: 20110113
  Transmission Date: 20110831
  Serious: Yes (Life-Threatening)
  Sender: FDA-Public Use
  Company Number: None

PATIENT
  Age: 58 Year
  Sex: Male
  Weight: 102.6 kg

DRUGS (1)
  1. BUPIVACAINE HCL [Suspect]
     Indication: SURGERY
     Dosage: 6 ML ONCE OTHER
     Route: 050
     Dates: start: 20101210, end: 20101210

REACTIONS (2)
  - BRADYCARDIA [None]
  - CARDIAC ARREST [None]
